FAERS Safety Report 21260398 (Version 1)
Quarter: 2022Q3

REPORT INFORMATION
  Report Type: Spontaneous
  Country: CN (occurrence: CN)
  Receive Date: 20220826
  Receipt Date: 20220826
  Transmission Date: 20221026
  Serious: Yes (Hospitalization, Other)
  Sender: FDA-Public Use
  Company Number: None

PATIENT
  Age: 50 Year
  Sex: Female
  Weight: 62 kg

DRUGS (9)
  1. CYCLOPHOSPHAMIDE [Suspect]
     Active Substance: CYCLOPHOSPHAMIDE
     Indication: Follicular lymphoma
     Dosage: 1200 MG, QD, DILUTED WITH 0.9% SODIUM CHLORIDE 500 ML
     Route: 041
     Dates: start: 20220723, end: 20220723
  2. CYCLOPHOSPHAMIDE [Suspect]
     Active Substance: CYCLOPHOSPHAMIDE
     Indication: T-cell lymphoma
  3. SODIUM CHLORIDE [Suspect]
     Active Substance: SODIUM CHLORIDE
     Indication: Medication dilution
     Dosage: 500 ML, QD, DILUTED IN CYCLOPHOSPHAMIDE 1200MG
     Route: 041
     Dates: start: 20220723, end: 20220723
  4. SODIUM CHLORIDE [Suspect]
     Active Substance: SODIUM CHLORIDE
     Dosage: 100 ML, QD, DILUTED IN VINCRISTINE SULFATE 2 MG
     Route: 041
     Dates: start: 20220723, end: 20220723
  5. DEXTROSE MONOHYDRATE [Suspect]
     Active Substance: DEXTROSE MONOHYDRATE
     Indication: Medication dilution
     Dosage: 500 ML, QD, DILUTED IN PIRARUBICIN HYDROCHLORIDE 80 MG (PUMP)
     Route: 041
     Dates: start: 20220723, end: 20220723
  6. PIRARUBICIN HYDROCHLORIDE [Suspect]
     Active Substance: PIRARUBICIN HYDROCHLORIDE
     Indication: Follicular lymphoma
     Dosage: 80 MG, QD, DILUTED WITH GLUCOSE 500 ML (PUMP)
     Route: 041
     Dates: start: 20220723, end: 20220723
  7. PIRARUBICIN HYDROCHLORIDE [Suspect]
     Active Substance: PIRARUBICIN HYDROCHLORIDE
     Indication: T-cell lymphoma
  8. VINCRISTINE SULFATE [Suspect]
     Active Substance: VINCRISTINE SULFATE
     Indication: Follicular lymphoma
     Dosage: 2 MG, QD, DILUTED WITH 0.9% SODIUM CHLORIDE 100 ML
     Route: 041
     Dates: start: 20220723, end: 20220723
  9. VINCRISTINE SULFATE [Suspect]
     Active Substance: VINCRISTINE SULFATE
     Indication: T-cell lymphoma

REACTIONS (1)
  - Myelosuppression [Recovering/Resolving]

NARRATIVE: CASE EVENT DATE: 20220804
